FAERS Safety Report 23549372 (Version 1)
Quarter: 2024Q1

REPORT INFORMATION
  Report Type: Spontaneous
  Country: US (occurrence: US)
  Receive Date: 20240221
  Receipt Date: 20240221
  Transmission Date: 20240410
  Serious: No
  Sender: FDA-Public Use
  Company Number: US-PFIZER INC-PV202400024382

PATIENT
  Age: 33 Year
  Sex: Female

DRUGS (1)
  1. XALKORI [Suspect]
     Active Substance: CRIZOTINIB
     Dosage: TAKE 1 CAPSULE, PO, TWICE A DAY (BD).
     Route: 048

REACTIONS (1)
  - Musculoskeletal discomfort [Unknown]
